FAERS Safety Report 24036422 (Version 1)
Quarter: 2024Q3

REPORT INFORMATION
  Report Type: Spontaneous
  Country: US (occurrence: US)
  Receive Date: 20240701
  Receipt Date: 20240701
  Transmission Date: 20241016
  Serious: No
  Sender: JOHNSON AND JOHNSON
  Company Number: US-JNJFOC-20240648301

PATIENT

DRUGS (1)
  1. EVITHROM [Suspect]
     Active Substance: THROMBIN HUMAN
     Indication: Haemostasis
     Route: 061

REACTIONS (1)
  - Drug ineffective [Unknown]

NARRATIVE: CASE EVENT DATE: 20240529
